FAERS Safety Report 6771522-3 (Version None)
Quarter: 2010Q2

REPORT INFORMATION
  Report Type: 
  Country: None (occurrence: None)
  Receive Date: 20100615
  Receipt Date: 20100601
  Transmission Date: 20101027
  Serious: No
  Sender: FDA-Public Use
  Company Number: 009934

PATIENT
  Age: 80 Year
  Sex: Male

DRUGS (1)
  1. PLETAL [Suspect]

REACTIONS (1)
  - BLOOD CREATININE INCREASED [None]
